FAERS Safety Report 8030460 (Version 2)
Quarter: 2014Q1

REPORT INFORMATION
  Report Type: Spontaneous
  Country: FR (occurrence: None)
  Receive Date: 20110623
  Receipt Date: 20140203
  Transmission Date: 20141002
  Serious: Yes (Other)
  Sender: FDA-Public Use
  Company Number: 2011FR0189

PATIENT
  Age: 48 Year
  Sex: Male

DRUGS (2)
  1. ANAKINRA [Suspect]
     Indication: JUVENILE IDIOPATHIC ARTHRITIS
     Dosage: 100 MG 9100 MG, 1 IN 1 D)
  2. CYCLOSPORINE [Concomitant]

REACTIONS (5)
  - Neuroglycopenia [None]
  - Neutropenia [None]
  - Leukocytosis [None]
  - Myelocytosis [None]
  - Monocytosis [None]
